FAERS Safety Report 8622926-5 (Version None)
Quarter: 2012Q3

REPORT INFORMATION
  Report Type: 
  Country: None (occurrence: None)
  Receive Date: 20120827
  Receipt Date: 20120823
  Transmission Date: 20120928
  Serious: Yes (Death, Hospitalization)
  Sender: FDA-Public Use
  Company Number: PHHY2011MX103790

PATIENT
  Sex: Male

DRUGS (2)
  1. FORADIL [Suspect]
     Indication: ASTHMA
     Dosage: 12 UG, QD
     Dates: start: 20110724
  2. COUGH AND COLD PREPARATIONS [Concomitant]
     Indication: COUGH

REACTIONS (3)
  - ASTHMA [None]
  - INFARCTION [None]
  - CARDIO-RESPIRATORY ARREST [None]
